FAERS Safety Report 11086328 (Version 2)
Quarter: 2015Q2

REPORT INFORMATION
  Report Type: Spontaneous
  Country: JP (occurrence: JP)
  Receive Date: 20150504
  Receipt Date: 20150603
  Transmission Date: 20150821
  Serious: Yes (Death)
  Sender: FDA-Public Use
  Company Number: JP-ROCHE-1571758

PATIENT
  Age: 69 Year
  Sex: Female
  Weight: 46 kg

DRUGS (3)
  1. METHYCOBAL [Concomitant]
     Active Substance: METHYLCOBALAMIN
     Route: 065
  2. PRORENAL (JAPAN) [Concomitant]
     Active Substance: LIMAPROST
     Route: 065
  3. ACTEMRA [Suspect]
     Active Substance: TOCILIZUMAB
     Indication: RHEUMATOID ARTHRITIS
     Dosage: DOSAGE IS UNCERTAIN.
     Route: 041
     Dates: start: 20140813

REACTIONS (1)
  - Sudden death [Fatal]

NARRATIVE: CASE EVENT DATE: 20150220
